FAERS Safety Report 14451654 (Version 1)
Quarter: 2018Q1

REPORT INFORMATION
  Report Type: Spontaneous
  Country: US (occurrence: US)
  Receive Date: 20180129
  Receipt Date: 20180129
  Transmission Date: 20180509
  Serious: No
  Sender: FDA-Public Use
  Company Number: US-ABBVIE-17K-163-2155894-00

PATIENT
  Sex: Female

DRUGS (1)
  1. HUMIRA [Suspect]
     Active Substance: ADALIMUMAB
     Indication: RHEUMATOID ARTHRITIS
     Route: 058

REACTIONS (11)
  - Cough [Unknown]
  - Rheumatoid lung [Unknown]
  - Frustration tolerance decreased [Unknown]
  - Sjogren^s syndrome [Unknown]
  - Eye disorder [Unknown]
  - Mobility decreased [Unknown]
  - Anger [Unknown]
  - Neuralgia [Unknown]
  - Burning sensation [Unknown]
  - Gastrointestinal disorder [Unknown]
  - Dry skin [Unknown]
